FAERS Safety Report 7876602-7 (Version None)
Quarter: 2011Q4

REPORT INFORMATION
  Report Type: 
  Country: None (occurrence: None)
  Receive Date: 20111031
  Receipt Date: 20111021
  Transmission Date: 20120403
  Serious: Yes (Other)
  Sender: FDA-Public Use
  Company Number: US-BAYER-2011-103606

PATIENT
  Age: 34 Year
  Sex: Female
  Weight: 77 kg

DRUGS (6)
  1. ADVAIR DISKUS 100/50 [Concomitant]
  2. CLARITIN [Concomitant]
  3. CITRACAL PETITES [Suspect]
     Dosage: 1 DF, ONCE
     Dates: start: 20111021
  4. PROAIR HFA [Concomitant]
  5. RESPIRATORY SYSTEM [Concomitant]
  6. SINGULAIR [Concomitant]

REACTIONS (2)
  - FOREIGN BODY [None]
  - APHAGIA [None]
